FAERS Safety Report 7205758-4 (Version None)
Quarter: 2010Q4

REPORT INFORMATION
  Report Type: 
  Country: None (occurrence: None)
  Receive Date: 20101231
  Receipt Date: 20101223
  Transmission Date: 20110411
  Serious: Yes (Other)
  Sender: FDA-Public Use
  Company Number: US-BRISTOL-MYERS SQUIBB COMPANY-15464308

PATIENT
  Age: 51 Year
  Sex: Male

DRUGS (5)
  1. CYCLOPHOSPHAMIDE [Suspect]
  2. VINCRISTINE [Suspect]
  3. PREDNISONE [Suspect]
  4. RITUXIMAB [Suspect]
  5. HYDROXYDAUNORUBICIN [Suspect]

REACTIONS (1)
  - HEPATITIS B [None]
